FAERS Safety Report 24256348 (Version 1)
Quarter: 2024Q3

REPORT INFORMATION
  Report Type: Report from Study
  Country: DE (occurrence: DE)
  Receive Date: 20240828
  Receipt Date: 20240828
  Transmission Date: 20241017
  Serious: Yes (Hospitalization, Other)
  Sender: ROCHE
  Company Number: None

PATIENT
  Age: 52 Year
  Sex: Female

DRUGS (5)
  1. OCREVUS [Suspect]
     Active Substance: OCRELIZUMAB
     Indication: Relapsing-remitting multiple sclerosis
     Dosage: 300 MG, CYCLIC - EVERY 14 DAYS
     Route: 042
     Dates: start: 20200716
  2. OCREVUS [Suspect]
     Active Substance: OCRELIZUMAB
     Dosage: 600 MG, CYCLIC - EVERY 244 DAYS
     Route: 042
     Dates: start: 20200716
  3. OCREVUS [Suspect]
     Active Substance: OCRELIZUMAB
     Dosage: 600 MG, CYCLIC - EVERY 202 DAYS
     Route: 042
     Dates: start: 20210203
  4. COMIRNATY (TOZINAMERAN) [Suspect]
     Active Substance: TOZINAMERAN
     Indication: COVID-19 immunisation
     Dosage: DOSE 3 (BOOSTER), SINGLE
     Route: 065
     Dates: start: 20211113, end: 20211113
  5. CITALOPRAM [Concomitant]
     Active Substance: CITALOPRAM\CITALOPRAM HYDROBROMIDE
     Dosage: 20 MG, 1X/DAY (1-0-0)

REACTIONS (6)
  - Fatigue [Not Recovered/Not Resolved]
  - B-lymphocyte count decreased [Not Recovered/Not Resolved]
  - Immobilisation syndrome [Recovered/Resolved]
  - Gastrointestinal bacterial infection [Recovered/Resolved]
  - Musculoskeletal stiffness [Recovering/Resolving]
  - Crepitations [Recovered/Resolved]

NARRATIVE: CASE EVENT DATE: 20211113
